FAERS Safety Report 12442698 (Version 1)
Quarter: 2016Q2

REPORT INFORMATION
  Report Type: Spontaneous
  Country: US (occurrence: US)
  Receive Date: 20160607
  Receipt Date: 20160607
  Transmission Date: 20160815
  Serious: Yes (Hospitalization)
  Sender: FDA-Public Use
  Company Number: US-LPDUSPRD-20160469

PATIENT
  Sex: Female

DRUGS (1)
  1. VENOFER [Suspect]
     Active Substance: IRON SUCROSE
     Dosage: 400 MG/250 ML NS OVER 2.5 HRS
     Route: 042
     Dates: start: 20160602, end: 20160602

REACTIONS (3)
  - Peripheral swelling [Unknown]
  - Off label use [Unknown]
  - Presyncope [Unknown]

NARRATIVE: CASE EVENT DATE: 20160602
